FAERS Safety Report 8761075 (Version 2)
Quarter: 2012Q4

REPORT INFORMATION
  Report Type: 
  Country: US (occurrence: US)
  Receive Date: 20120830
  Receipt Date: 20121121
  Transmission Date: 20130627
  Serious: No
  Sender: FDA-Public Use
  Company Number: US-009507513-1208USA010351

PATIENT
  Sex: Male

DRUGS (8)
  1. REBETOL [Suspect]
     Indication: HEPATITIS C
     Dosage: UNK
     Dates: start: 20120530
  2. REBETOL [Suspect]
     Dosage: UNK
     Dates: start: 20110222, end: 20120117
  3. PEG-INTRON [Suspect]
     Indication: HEPATITIS C
     Dosage: UNK
     Dates: start: 20120530
  4. PEG-INTRON [Suspect]
     Dosage: UNK
     Dates: start: 20110222, end: 20120117
  5. VICTRELIS [Suspect]
     Indication: HEPATITIS C
     Dosage: UNK
     Dates: start: 20120625
  6. LISINOPRIL [Concomitant]
  7. PROVATIN [Concomitant]
  8. DIAZEPAM [Concomitant]

REACTIONS (22)
  - Contusion [Unknown]
  - Fatigue [Unknown]
  - Irritability [Unknown]
  - Headache [Unknown]
  - Haemoglobin abnormal [Unknown]
  - Hepatitis C [Unknown]
  - Headache [Unknown]
  - Abdominal pain upper [Unknown]
  - Fatigue [Unknown]
  - Irritability [Unknown]
  - Back pain [Unknown]
  - Neck pain [Unknown]
  - Neutrophil count decreased [Unknown]
  - Platelet count decreased [Unknown]
  - Hepatitis C [Unknown]
  - Neck injury [Unknown]
  - Dysgeusia [Unknown]
  - Anaemia [Unknown]
  - Fatigue [Unknown]
  - Mood swings [Unknown]
  - Irritability [Unknown]
  - Skin disorder [Unknown]
